FAERS Safety Report 9954812 (Version 1)
Quarter: 2014Q1

REPORT INFORMATION
  Report Type: Spontaneous
  Country: US (occurrence: US)
  Receive Date: 20140304
  Receipt Date: 20140304
  Transmission Date: 20141002
  Serious: Yes (Other)
  Sender: FDA-Public Use
  Company Number: US-BAXTER-2014BAX010022

PATIENT
  Age: 64 Year
  Sex: Female
  Weight: 72.7 kg

DRUGS (3)
  1. GAMMAGARD LIQUID [Suspect]
     Indication: CYSTITIS
     Route: 042
     Dates: start: 2010
  2. GAMMAGARD LIQUID [Suspect]
     Indication: CYSTITIS
  3. GAMMAGARD LIQUID [Suspect]
     Indication: OFF LABEL USE

REACTIONS (5)
  - Diabetes mellitus [Unknown]
  - Bladder spasm [Recovered/Resolved]
  - Hepatitis B [Not Recovered/Not Resolved]
  - Renal failure [Not Recovered/Not Resolved]
  - Hepatic steatosis [Not Recovered/Not Resolved]
